APPROVED DRUG PRODUCT: PROPOXYPHENE NAPSYLATE AND ACETAMINOPHEN
Active Ingredient: ACETAMINOPHEN; PROPOXYPHENE NAPSYLATE
Strength: 650MG;100MG
Dosage Form/Route: TABLET;ORAL
Application: A070910 | Product #001
Applicant: ACTAVIS ELIZABETH LLC
Approved: Jan 2, 1987 | RLD: No | RS: No | Type: DISCN